FAERS Safety Report 6789975-3 (Version None)
Quarter: 2010Q2

REPORT INFORMATION
  Report Type: 
  Country: None (occurrence: None)
  Receive Date: 20100624
  Receipt Date: 20100621
  Transmission Date: 20101027
  Serious: Yes (Other)
  Sender: FDA-Public Use
  Company Number: TR-ROXANE LABORATORIES, INC.-2010-RO-00743RO

PATIENT
  Age: 47 Year
  Sex: Male

DRUGS (11)
  1. MYCOPHENOLATE MOFETIL [Suspect]
  2. CYCLOSPORINE [Suspect]
  3. GANCICLOVIR [Suspect]
     Indication: ANTIVIRAL PROPHYLAXIS
     Route: 042
  4. GANCICLOVIR [Suspect]
     Indication: BICYTOPENIA
     Route: 042
  5. GANCICLOVIR [Suspect]
  6. VALGANCICLOVIR [Suspect]
     Indication: ANTIVIRAL PROPHYLAXIS
     Route: 048
  7. VALGANCICLOVIR [Suspect]
     Indication: HEART TRANSPLANT
  8. STEROIDS [Suspect]
     Indication: HEART TRANSPLANT REJECTION
  9. CEFTRIAXONE [Suspect]
     Indication: PNEUMONIA
     Route: 042
  10. PIPERACILLIN AND TAZOBACTAM [Suspect]
     Indication: GENERAL SYMPTOM
     Route: 042
  11. CARBAPENEM MEROPENEM [Suspect]
     Indication: PNEUMONIA KLEBSIELLA
     Route: 042

REACTIONS (7)
  - BICYTOPENIA [None]
  - BRONCHOPULMONARY ASPERGILLOSIS [None]
  - CYTOMEGALOVIRUS INFECTION [None]
  - DISORIENTATION [None]
  - HEART TRANSPLANT REJECTION [None]
  - PNEUMONIA KLEBSIELLA [None]
  - THROMBOCYTOPENIA [None]
